FAERS Safety Report 20781876 (Version 3)
Quarter: 2022Q3

REPORT INFORMATION
  Report Type: Spontaneous
  Country: US (occurrence: US)
  Receive Date: 20220504
  Receipt Date: 20220818
  Transmission Date: 20221026
  Serious: No
  Sender: FDA-Public Use
  Company Number: US-BRISTOL-MYERS SQUIBB COMPANY-2022-030504

PATIENT
  Age: 55 Year
  Sex: Female
  Weight: 35.8 kg

DRUGS (1)
  1. REVLIMID [Suspect]
     Active Substance: LENALIDOMIDE
     Indication: Plasma cell myeloma
     Dosage: DAILY * 14 DAYS ON AND 7 DAYS OFF
     Route: 048
     Dates: start: 20220408

REACTIONS (11)
  - Flatulence [Recovered/Resolved]
  - Laboratory test abnormal [Recovering/Resolving]
  - Product dose omission issue [Unknown]
  - Asthenia [Not Recovered/Not Resolved]
  - Gait disturbance [Not Recovered/Not Resolved]
  - Pain in extremity [Not Recovered/Not Resolved]
  - Back pain [Not Recovered/Not Resolved]
  - Chest pain [Not Recovered/Not Resolved]
  - Bone pain [Not Recovered/Not Resolved]
  - Off label use [Unknown]
  - Diarrhoea [Recovered/Resolved]
